FAERS Safety Report 4273771-5 (Version None)
Quarter: 2004Q1

REPORT INFORMATION
  Report Type: 
  Country: None (occurrence: None)
  Receive Date: 20040114
  Receipt Date: 20040105
  Transmission Date: 20041129
  Serious: Yes (Hospitalization)
  Sender: FDA-Public Use
  Company Number: 200410001FR

PATIENT
  Age: 68 Year
  Sex: Female

DRUGS (13)
  1. FEXOFENADINE HCL [Suspect]
     Dosage: PO
     Route: 048
     Dates: start: 20030615, end: 20031210
  2. AMARYL [Suspect]
     Indication: DIABETES MELLITUS NON-INSULIN-DEPENDENT
     Dosage: PO
     Route: 048
     Dates: start: 20030615, end: 20031210
  3. OXAZEPAM [Suspect]
     Dosage: PO
     Route: 048
     Dates: start: 20030615, end: 20031210
  4. NITRENDIPINE (NIDREL) [Suspect]
     Dosage: PO
     Route: 048
     Dates: start: 20030615, end: 20031210
  5. CITALOPRAM HYDROBROMIDE (SROPRAM) [Suspect]
     Dosage: PO
     Route: 048
     Dates: start: 20030615, end: 20031210
  6. HYTACAND [Suspect]
     Dosage: PO
     Route: 048
     Dates: start: 20030615, end: 20031210
  7. LAMALINE [Suspect]
     Dosage: PO
     Route: 048
     Dates: start: 20030615, end: 20031210
  8. TENOXICAM (TILCOTIL) [Suspect]
     Dosage: PO
     Route: 048
     Dates: start: 20030615, end: 20031210
  9. MYOREL [Concomitant]
     Dosage: PO
     Route: 048
     Dates: start: 20030615, end: 20031210
  10. CLONAZEPAM [Suspect]
     Dosage: PO
     Route: 048
     Dates: start: 20031114, end: 20031210
  11. IBUPROFEN [Suspect]
     Dosage: PO
     Route: 048
     Dates: start: 20031127, end: 20031210
  12. CIPROFLOXACIN [Suspect]
     Dosage: PO
     Route: 048
     Dates: start: 20031106, end: 20031106
  13. TROSPIUM CHLORIDE [Suspect]
     Dosage: PO
     Route: 048
     Dates: start: 20031103, end: 20031210

REACTIONS (4)
  - HAEMORRHAGE [None]
  - HYDRONEPHROSIS [None]
  - RENAL FAILURE ACUTE [None]
  - THROMBOCYTOPENIA [None]
